FAERS Safety Report 9161415 (Version 2)
Quarter: 2013Q1

REPORT INFORMATION
  Report Type: Spontaneous
  Country: FR (occurrence: FR)
  Receive Date: 20130313
  Receipt Date: 20130318
  Transmission Date: 20140127
  Serious: Yes (Other)
  Sender: FDA-Public Use
  Company Number: FR-PFIZER INC-2013081728

PATIENT
  Age: 60 Year
  Sex: Female
  Weight: 80 kg

DRUGS (6)
  1. ARACYTINE [Suspect]
     Indication: ACUTE MYELOID LEUKAEMIA
     Dosage: UNK
     Dates: start: 20121211
  2. IDARUBICIN HCL [Suspect]
     Dosage: UNK
     Dates: start: 20121211
  3. HYZAAR [Concomitant]
     Dosage: UNK
  4. AMLOR [Concomitant]
     Dosage: UNK
  5. ZYLORIC [Concomitant]
     Dosage: UNK
  6. ARIMIDEX [Concomitant]
     Dosage: UNK

REACTIONS (1)
  - Acute febrile neutrophilic dermatosis [Unknown]
